FAERS Safety Report 5534162-X (Version None)
Quarter: 2007Q4

REPORT INFORMATION
  Report Type: 
  Country: None (occurrence: None)
  Receive Date: 20071129
  Receipt Date: 20071129
  Transmission Date: 20080405
  Serious: Yes (Hospitalization)
  Sender: FDA-Public Use
  Company Number: None

PATIENT
  Sex: Male
  Weight: 47.3 kg

DRUGS (3)
  1. BEVACIZUMAB (RHUMAB VEGF) [Suspect]
     Dosage: 252 MG
     Dates: end: 20070919
  2. LEUCOVORIN CALCIUM [Suspect]
     Dosage: 616 MG
     Dates: end: 20070919
  3. ELOXATIN [Suspect]
     Dosage: 77 MG
     Dates: end: 20070919

REACTIONS (2)
  - GASTROINTESTINAL HAEMORRHAGE [None]
  - OESOPHAGEAL VARICES HAEMORRHAGE [None]
